FAERS Safety Report 11340119 (Version 1)
Quarter: 2015Q3

REPORT INFORMATION
  Report Type: Spontaneous
  Country: US (occurrence: US)
  Receive Date: 20150805
  Receipt Date: 20150805
  Transmission Date: 20151125
  Serious: No
  Sender: FDA-Public Use
  Company Number: US-AMGEN-USASP2015077707

PATIENT
  Age: 61 Year
  Sex: Female

DRUGS (8)
  1. FLUTICASONE PROPIONATE. [Concomitant]
     Active Substance: FLUTICASONE PROPIONATE
     Dosage: 16GM - 50MCG
  2. ZOSTAVAX [Concomitant]
     Active Substance: VARICELLA-ZOSTER VIRUS STRAIN OKA/MERCK LIVE ANTIGEN
     Dosage: SDV/INJ PWD 1^S-19400U
  3. ENBREL [Suspect]
     Active Substance: ETANERCEPT
     Indication: RHEUMATOID ARTHRITIS
     Dosage: 50 MG, QWK
     Route: 058
     Dates: start: 20130220
  4. PANTOPRAZOLE SODIUM. [Concomitant]
     Active Substance: PANTOPRAZOLE SODIUM
     Dosage: 40 MG, UNK
  5. FOLIC ACID. [Concomitant]
     Active Substance: FOLIC ACID
     Dosage: V/3162-1 MG
  6. FAMOTIDINE. [Concomitant]
     Active Substance: FAMOTIDINE
     Dosage: TABS 5729 - 40MG
  7. PAIN RELIEF NOS [Concomitant]
     Active Substance: CAMPHOR (SYNTHETIC)\LEVOMENTHOL\MENTHYL SALICYLATE OR CAMPHOR (SYNTHETIC)\MENTHOL\MENTHYL SALICYLATE OR MENTHOL\MENTHYL SALICYLATE
     Dosage: 500 MG
  8. VALACYCLOVIR HCL [Concomitant]
     Active Substance: VALACYCLOVIR HYDROCHLORIDE
     Dosage: TABS M123 - 1000MG

REACTIONS (3)
  - Pain [Unknown]
  - Contusion [Unknown]
  - Inflammation [Unknown]

NARRATIVE: CASE EVENT DATE: 20150727
